FAERS Safety Report 7409831-7 (Version None)
Quarter: 2011Q2

REPORT INFORMATION
  Report Type: 
  Country: None (occurrence: None)
  Receive Date: 20110412
  Receipt Date: 20110401
  Transmission Date: 20111010
  Serious: Yes (Life-Threatening, Hospitalization)
  Sender: FDA-Public Use
  Company Number: DE-ELI_LILLY_AND_COMPANY-DE201104001020

PATIENT
  Age: 69 Year
  Sex: Male
  Weight: 74 kg

DRUGS (3)
  1. GEMCITABINE HYDROCHLORIDE [Suspect]
     Indication: PANCREATIC CARCINOMA
     Dosage: 1000 MG/M2, UNK
     Route: 042
     Dates: start: 20100901
  2. CASODEX [Concomitant]
     Indication: PROSTATE CANCER
     Dosage: 50-100MG
     Route: 048
     Dates: start: 20070101
  3. ZOLADEX [Concomitant]
     Indication: PROSTATE CANCER
     Route: 058

REACTIONS (1)
  - INTERSTITIAL LUNG DISEASE [None]
